FAERS Safety Report 26188076 (Version 1)
Quarter: 2025Q4

REPORT INFORMATION
  Report Type: Spontaneous
  Country: US (occurrence: US)
  Receive Date: 20251222
  Receipt Date: 20251222
  Transmission Date: 20260118
  Serious: Yes (Hospitalization, Other)
  Sender: ABBVIE
  Company Number: US-ABBVIE-6596243

PATIENT
  Sex: Male

DRUGS (2)
  1. RINVOQ [Suspect]
     Active Substance: UPADACITINIB
     Indication: Maternal exposure timing unspecified
     Route: 064
  2. LACTULOSE [Concomitant]
     Active Substance: LACTULOSE
     Indication: Constipation

REACTIONS (12)
  - Premature baby [Recovered/Resolved]
  - Foetal exposure during pregnancy [Unknown]
  - Depressed level of consciousness [Recovered/Resolved]
  - Gastrooesophageal reflux disease [Recovering/Resolving]
  - Haematochezia [Recovered/Resolved]
  - Foetal heart rate decreased [Recovered/Resolved]
  - Necrotising colitis [Recovered/Resolved]
  - Flatulence [Recovering/Resolving]
  - Mucous stools [Recovered/Resolved]
  - Plagiocephaly [Recovering/Resolving]
  - Foetal growth restriction [Unknown]
  - Sensitive skin [Unknown]

NARRATIVE: CASE EVENT DATE: 20250101
